FAERS Safety Report 21089079 (Version 1)
Quarter: 2022Q3

REPORT INFORMATION
  Report Type: Spontaneous
  Country: DE (occurrence: DE)
  Receive Date: 20220715
  Receipt Date: 20220715
  Transmission Date: 20221027
  Serious: Yes (Life-Threatening, Hospitalization, Other)
  Sender: FDA-Public Use
  Company Number: DE-BRISTOL-MYERS SQUIBB COMPANY-2022-069932

PATIENT
  Age: 66 Year
  Sex: Male
  Weight: 96 kg

DRUGS (5)
  1. YERVOY [Suspect]
     Active Substance: IPILIMUMAB
     Indication: Malignant melanoma
     Route: 042
     Dates: start: 20220705, end: 20220705
  2. OPDIVO [Suspect]
     Active Substance: NIVOLUMAB
     Indication: Malignant melanoma
     Route: 042
     Dates: start: 20220705, end: 20220705
  3. HISTATIN [Concomitant]
     Indication: Malignant melanoma
     Route: 042
     Dates: start: 20220705, end: 20220705
  4. DIMETHINDENE [Concomitant]
     Active Substance: DIMETHINDENE
     Indication: Allergy prophylaxis
     Route: 065
  5. GRANISETRON [Concomitant]
     Active Substance: GRANISETRON

REACTIONS (4)
  - Hypersensitivity [Not Recovered/Not Resolved]
  - Hepatitis [Not Recovered/Not Resolved]
  - Prescribed overdose [Unknown]
  - Incorrect product administration duration [Unknown]

NARRATIVE: CASE EVENT DATE: 20220705
